FAERS Safety Report 6102952-0 (Version None)
Quarter: 2009Q1

REPORT INFORMATION
  Report Type: 
  Country: None (occurrence: None)
  Receive Date: 20090305
  Receipt Date: 20090219
  Transmission Date: 20090719
  Serious: Yes (Other)
  Sender: FDA-Public Use
  Company Number: PHHY2009JP06215

PATIENT

DRUGS (1)
  1. VOLTAREN [Suspect]
     Indication: BACK INJURY
     Dosage: 2 TO 3 SUPPOSITORY PER DAY
     Route: 054

REACTIONS (1)
  - HAEMORRHOIDAL HAEMORRHAGE [None]
